FAERS Safety Report 10193674 (Version 1)
Quarter: 2014Q2

REPORT INFORMATION
  Report Type: Spontaneous
  Country: US (occurrence: US)
  Receive Date: 20140524
  Receipt Date: 20140524
  Transmission Date: 20141212
  Serious: No
  Sender: FDA-Public Use
  Company Number: US-SA-2013SA132376

PATIENT
  Sex: 0

DRUGS (1)
  1. LANTUS [Suspect]
     Route: 065

REACTIONS (4)
  - Weight decreased [Unknown]
  - Oral infection [Unknown]
  - Impaired healing [Unknown]
  - Blood glucose increased [Unknown]
